FAERS Safety Report 17159274 (Version 3)
Quarter: 2020Q2

REPORT INFORMATION
  Report Type: Spontaneous
  Country: US (occurrence: US)
  Receive Date: 20191216
  Receipt Date: 20200514
  Transmission Date: 20200713
  Serious: Yes (Other)
  Sender: FDA-Public Use
  Company Number: US-GILEAD-2019-0442852

PATIENT
  Age: 58 Year
  Sex: Male
  Weight: 97.28 kg

DRUGS (42)
  1. NORVIR [Concomitant]
     Active Substance: RITONAVIR
  2. SPIRONOLACTONE AND HYDROCHLOROTHIAZIDE [Concomitant]
     Active Substance: HYDROCHLOROTHIAZIDE\SPIRONOLACTONE
  3. NAMENDA [Concomitant]
     Active Substance: MEMANTINE HYDROCHLORIDE
  4. OXYCONTIN [Concomitant]
     Active Substance: OXYCODONE HYDROCHLORIDE
  5. NEXIUM 1-2-3 [Concomitant]
     Active Substance: AMOXICILLIN\CLARITHROMYCIN\ESOMEPRAZOLE
  6. CEREFOLIN NAC [ACETYLCYSTEINE;CALCIUM LEVOMEFOLATE;MECOBALAMIN] [Concomitant]
  7. VIAGRA [Concomitant]
     Active Substance: SILDENAFIL CITRATE
  8. TRUVADA [Suspect]
     Active Substance: EMTRICITABINE\TENOFOVIR DISOPROXIL FUMARATE
     Indication: HIV INFECTION
     Dosage: 200/300 MG, QD
     Route: 048
     Dates: start: 20130509, end: 20130814
  9. VITAMIN B12 + FOLIC ACID [Concomitant]
     Active Substance: CYANOCOBALAMIN\FOLIC ACID
  10. PROMETHAZINE [Concomitant]
     Active Substance: PROMETHAZINE HYDROCHLORIDE
  11. LASIX + K [Concomitant]
     Active Substance: FUROSEMIDE\POTASSIUM CHLORIDE
  12. KLOR-CON [Concomitant]
     Active Substance: POTASSIUM CHLORIDE
  13. OXYCODONE WITH APAP [Concomitant]
     Active Substance: ACETAMINOPHEN\OXYCODONE HYDROCHLORIDE
  14. PREZISTA [Concomitant]
     Active Substance: DARUNAVIR ETHANOLATE
  15. NEURONTIN [Concomitant]
     Active Substance: GABAPENTIN
  16. ZOFRAN [Concomitant]
     Active Substance: ONDANSETRON HYDROCHLORIDE
  17. AMBIEN [Concomitant]
     Active Substance: ZOLPIDEM TARTRATE
  18. IBUPROFEN. [Concomitant]
     Active Substance: IBUPROFEN
  19. INTELENCE [Concomitant]
     Active Substance: ETRAVIRINE
  20. LOPERAMIDE [Concomitant]
     Active Substance: LOPERAMIDE
  21. ADVAIR HFA [Concomitant]
     Active Substance: FLUTICASONE PROPIONATE\SALMETEROL XINAFOATE
  22. IMITREX DF [Concomitant]
     Active Substance: SUMATRIPTAN SUCCINATE
  23. PERCOCET [OXYCODONE HYDROCHLORIDE;OXYCODONE TEREPHTHALATE;PARACETAMOL] [Concomitant]
     Active Substance: ACETAMINOPHEN\OXYCODONE HYDROCHLORIDE\OXYCODONE TEREPHTHALATE
  24. CHANTIX [Concomitant]
     Active Substance: VARENICLINE TARTRATE
  25. LOSARTAN POTASSIUM. [Concomitant]
     Active Substance: LOSARTAN POTASSIUM
  26. ARTHROTEC [Suspect]
     Active Substance: DICLOFENAC SODIUM\MISOPROSTOL
     Indication: ARTHRITIS
     Dosage: UNK, BID
     Route: 048
  27. DYAZIDE [Concomitant]
     Active Substance: HYDROCHLOROTHIAZIDE\TRIAMTERENE
  28. PHENTERMINE. [Concomitant]
     Active Substance: PHENTERMINE
  29. DONEPEZIL HCL [Concomitant]
     Active Substance: DONEPEZIL HYDROCHLORIDE
  30. ALPRAZOLAM. [Concomitant]
     Active Substance: ALPRAZOLAM
  31. VENTOLIN [Concomitant]
     Active Substance: ALBUTEROL SULFATE
  32. XANAX [Concomitant]
     Active Substance: ALPRAZOLAM
  33. FOLTANX RF [Concomitant]
  34. TOPAMAX [Concomitant]
     Active Substance: TOPIRAMATE
  35. EGRIFTA [Concomitant]
     Active Substance: TESAMORELIN ACETATE
  36. MEMANTINE HCL [Concomitant]
     Active Substance: MEMANTINE
  37. TOPIRAMATE ACCORD [Concomitant]
     Active Substance: TOPIRAMATE
  38. MONTELUKAST SODIUM NIPPON ZOKI [Concomitant]
  39. ISENTRESS [Concomitant]
     Active Substance: RALTEGRAVIR POTASSIUM
  40. SINGULAIR [Concomitant]
     Active Substance: MONTELUKAST SODIUM
  41. MULTIVITAMIN + MINERAL [Concomitant]
     Active Substance: MINERALS\VITAMINS
  42. ZIDOVUDINE. [Concomitant]
     Active Substance: ZIDOVUDINE

REACTIONS (8)
  - Acute kidney injury [Unknown]
  - Pain [Unknown]
  - Renal failure [Unknown]
  - Anxiety [Unknown]
  - Emotional distress [Unknown]
  - Chronic kidney disease [Not Recovered/Not Resolved]
  - Economic problem [Unknown]
  - Anhedonia [Unknown]

NARRATIVE: CASE EVENT DATE: 20130509
